FAERS Safety Report 23545132 (Version 1)
Quarter: 2024Q1

REPORT INFORMATION
  Report Type: Spontaneous
  Country: US (occurrence: US)
  Receive Date: 20240220
  Receipt Date: 20240220
  Transmission Date: 20240410
  Serious: No
  Sender: FDA-Public Use
  Company Number: US-PFIZER INC-202400042697

PATIENT
  Age: 44 Year
  Sex: Female
  Weight: 99.79 kg

DRUGS (1)
  1. NURTEC ODT [Suspect]
     Active Substance: RIMEGEPANT SULFATE
     Indication: Migraine
     Dosage: DOSE UNKNOWN, 1 TABLET EVERY 48 HOURS
     Dates: start: 202308

REACTIONS (1)
  - Drug ineffective [Not Recovered/Not Resolved]
